FAERS Safety Report 9879879 (Version 1)
Quarter: 2014Q1

REPORT INFORMATION
  Report Type: Spontaneous
  Country: FR (occurrence: FR)
  Receive Date: 20140206
  Receipt Date: 20140206
  Transmission Date: 20141002
  Serious: Yes (Other)
  Sender: FDA-Public Use
  Company Number: FR-AMGEN-FRASP2014007845

PATIENT
  Age: 38 Year
  Sex: Female

DRUGS (3)
  1. ENBREL [Suspect]
     Indication: RHEUMATOID ARTHRITIS
     Dosage: 50 MG, WEEKLY
     Route: 065
     Dates: start: 2007
  2. CORTANCYL [Concomitant]
     Dosage: 3 MG, UNK
  3. PARACETAMOL [Concomitant]
     Dosage: UNK

REACTIONS (1)
  - Anti-neutrophil cytoplasmic antibody positive vasculitis [Recovering/Resolving]
